FAERS Safety Report 6798314-3 (Version None)
Quarter: 2010Q2

REPORT INFORMATION
  Report Type: 
  Country: None (occurrence: None)
  Receive Date: 20100622
  Receipt Date: 20100611
  Transmission Date: 20101027
  Serious: Yes (Other)
  Sender: FDA-Public Use
  Company Number: 2010SP026075

PATIENT
  Sex: Female
  Weight: 46.7205 kg

DRUGS (1)
  1. IMPLANON [Suspect]
     Indication: DRUG USE FOR UNKNOWN INDICATION
     Dosage: 1 DF
     Dates: start: 20080911, end: 20100503

REACTIONS (3)
  - ABDOMINAL PAIN LOWER [None]
  - BREAST MASS [None]
  - URINE HUMAN CHORIONIC GONADOTROPIN POSITIVE [None]
